FAERS Safety Report 22142782 (Version 2)
Quarter: 2023Q2

REPORT INFORMATION
  Report Type: Spontaneous
  Country: US (occurrence: US)
  Receive Date: 20230327
  Receipt Date: 20230619
  Transmission Date: 20230722
  Serious: Yes (Other)
  Sender: FDA-Public Use
  Company Number: US-ALXN-A202303643

PATIENT
  Sex: Female

DRUGS (1)
  1. ULTOMIRIS [Suspect]
     Active Substance: RAVULIZUMAB-CWVZ
     Indication: Myasthenia gravis
     Dosage: UNK
     Route: 065
     Dates: start: 202301

REACTIONS (2)
  - Diverticulitis [Unknown]
  - Colonoscopy [Unknown]

NARRATIVE: CASE EVENT DATE: 20230101
